FAERS Safety Report 4439691-8 (Version None)
Quarter: 2004Q3

REPORT INFORMATION
  Report Type: 
  Country: None (occurrence: None)
  Receive Date: 20040831
  Receipt Date: 20040825
  Transmission Date: 20050211
  Serious: Yes (Hospitalization)
  Sender: FDA-Public Use
  Company Number: NLWYE771519MAY04

PATIENT
  Age: 29 Year
  Sex: Female

DRUGS (2)
  1. EFFEXOR XR [Suspect]
     Indication: DEPRESSION
     Dosage: 300 MG 1X PER 1 DAY, ORAL
     Route: 048
     Dates: start: 20031128, end: 20040518
  2. SEROQUEL [Suspect]
     Indication: PSYCHIATRIC SYMPTOM
     Dosage: 200 MG 1X PER 1 DAY
     Dates: start: 20040501, end: 20040517

REACTIONS (3)
  - DYSKINESIA [None]
  - EXTRAPYRAMIDAL DISORDER [None]
  - NONSPECIFIC REACTION [None]
